FAERS Safety Report 7487755-7 (Version None)
Quarter: 2011Q2

REPORT INFORMATION
  Report Type: 
  Country: None (occurrence: None)
  Receive Date: 20110518
  Receipt Date: 20110509
  Transmission Date: 20111010
  Serious: Yes (Other)
  Sender: FDA-Public Use
  Company Number: PHHY2011JP40481

PATIENT
  Sex: Female

DRUGS (1)
  1. VOLTAREN [Suspect]
     Indication: PYREXIA
     Dosage: 25 MG DAILY
     Route: 048

REACTIONS (3)
  - DYSPNOEA [None]
  - CONVULSION [None]
  - BODY TEMPERATURE DECREASED [None]
